FAERS Safety Report 7394103-X (Version None)
Quarter: 2011Q2

REPORT INFORMATION
  Report Type: 
  Country: None (occurrence: None)
  Receive Date: 20110405
  Receipt Date: 20110324
  Transmission Date: 20111010
  Serious: Yes (Hospitalization, Disabling)
  Sender: FDA-Public Use
  Company Number: AU-JNJFOC-20110400405

PATIENT
  Age: 81 Year
  Sex: Male

DRUGS (1)
  1. LISTERINE [Suspect]
     Indication: PRODUCT USED FOR UNKNOWN INDICATION
     Route: 048

REACTIONS (3)
  - PRODUCT QUALITY ISSUE [None]
  - TENDON RUPTURE [None]
  - ACTIVITIES OF DAILY LIVING IMPAIRED [None]
